FAERS Safety Report 11071820 (Version 1)
Quarter: 2015Q2

REPORT INFORMATION
  Report Type: Report from Study
  Country: US (occurrence: US)
  Receive Date: 20150428
  Receipt Date: 20150428
  Transmission Date: 20150821
  Serious: Yes (Death, Other)
  Sender: FDA-Public Use
  Company Number: US-ASTELLAS-2015US013889

PATIENT
  Age: 53 Year
  Sex: Female
  Weight: 52 kg

DRUGS (17)
  1. ERLOTINIB [Suspect]
     Active Substance: ERLOTINIB
     Route: 048
     Dates: start: 20150207, end: 20150324
  2. CARBOPLATIN. [Concomitant]
     Active Substance: CARBOPLATIN
     Dosage: UNK, UNKNOWN FREQ.
     Route: 065
     Dates: start: 20130918, end: 20131231
  3. CARBOPLATIN. [Concomitant]
     Active Substance: CARBOPLATIN
     Indication: PRODUCT USED FOR UNKNOWN INDICATION
     Dosage: UNK UNK, UNKNOWN FREQ.
     Route: 065
     Dates: start: 200606
  4. ALIMTA [Concomitant]
     Active Substance: PEMETREXED DISODIUM
     Dosage: UNK, UNKNOWN FREQ.
     Route: 065
     Dates: start: 20120706
  5. ALIMTA [Concomitant]
     Active Substance: PEMETREXED DISODIUM
     Dosage: UNK, UNKNOWN FREQ.
     Route: 065
     Dates: start: 20140129, end: 20140312
  6. ERLOTINIB [Suspect]
     Active Substance: ERLOTINIB
     Dosage: 75 MG ALTERNATING WITH 100 MG, OTHER
     Route: 048
  7. AVASTIN [Suspect]
     Active Substance: BEVACIZUMAB
     Indication: LUNG NEOPLASM MALIGNANT
  8. CARBOPLATIN. [Concomitant]
     Active Substance: CARBOPLATIN
     Dosage: UNK, UNKNOWN FREQ.
     Route: 065
     Dates: start: 20120706
  9. ALIMTA [Concomitant]
     Active Substance: PEMETREXED DISODIUM
     Dosage: UNK, UNKNOWN FREQ.
     Route: 065
     Dates: start: 20120727, end: 20130111
  10. TAXOL [Concomitant]
     Active Substance: PACLITAXEL
     Dosage: UNK UNK, UNKNOWN FREQ.
     Route: 065
     Dates: start: 20120502
  11. ALIMTA [Concomitant]
     Active Substance: PEMETREXED DISODIUM
     Dosage: UNK, UNKNOWN FREQ.
     Route: 065
     Dates: start: 20130918, end: 20131231
  12. ERLOTINIB [Suspect]
     Active Substance: ERLOTINIB
     Route: 048
  13. ALIMTA [Concomitant]
     Active Substance: PEMETREXED DISODIUM
     Indication: PRODUCT USED FOR UNKNOWN INDICATION
     Dosage: UNK, UNKNOWN FREQ.
     Route: 065
     Dates: start: 20120502
  14. ALIMTA [Concomitant]
     Active Substance: PEMETREXED DISODIUM
     Dosage: UNK, UNKNOWN FREQ.
     Route: 065
     Dates: start: 20150113
  15. ERLOTINIB [Suspect]
     Active Substance: ERLOTINIB
     Indication: PRODUCT USED FOR UNKNOWN INDICATION
     Route: 048
     Dates: start: 200607, end: 200802
  16. AVASTIN [Suspect]
     Active Substance: BEVACIZUMAB
     Indication: METASTASES TO CENTRAL NERVOUS SYSTEM
     Dosage: UNK UNK, UNKNOWN FREQ.
     Route: 065
     Dates: start: 20150401
  17. TAXOL [Concomitant]
     Active Substance: PACLITAXEL
     Indication: PRODUCT USED FOR UNKNOWN INDICATION
     Dosage: UNK, UNKNOWN FREQ.
     Route: 065
     Dates: start: 200606

REACTIONS (4)
  - Malignant neoplasm progression [Unknown]
  - Drug ineffective [Unknown]
  - Death [Fatal]
  - Toxicity to various agents [Unknown]

NARRATIVE: CASE EVENT DATE: 201204
